FAERS Safety Report 6138480-6 (Version None)
Quarter: 2009Q1

REPORT INFORMATION
  Report Type: 
  Country: None (occurrence: None)
  Receive Date: 20090331
  Receipt Date: 20090319
  Transmission Date: 20090719
  Serious: Yes (Hospitalization)
  Sender: FDA-Public Use
  Company Number: US-PFIZER INC-2007064291

PATIENT
  Sex: Female
  Weight: 67.574 kg

DRUGS (7)
  1. EPIRUBICIN HCL [Suspect]
     Indication: BREAST CANCER
     Dosage: 149 MG EVERY 3 WEKS
     Route: 042
     Dates: start: 20070713, end: 20070802
  2. CYCLOPHOSPHAMIDE [Suspect]
     Indication: BREAST CANCER
     Dosage: TDD:990 MG
     Route: 042
     Dates: start: 20070713, end: 20070802
  3. MYCOLOG [Concomitant]
     Dosage: 2 EVERY 2 DAYS
     Route: 061
  4. METHADONE [Concomitant]
     Dosage: 3 TABLETS EVERY 8 HOURS
     Route: 048
  5. DILAUDID [Concomitant]
     Dosage: EVERY 4 HOURS
     Route: 048
  6. PROMETHAZINE [Concomitant]
     Dosage: 25 EVERY 6 HRS, AS NEEDED
     Route: 048
  7. LOVENOX [Concomitant]
     Dosage: 90 MG, 1X/DAY
     Route: 058

REACTIONS (4)
  - BACTERAEMIA [None]
  - FEBRILE NEUTROPENIA [None]
  - JUGULAR VEIN THROMBOSIS [None]
  - PANCYTOPENIA [None]
